FAERS Safety Report 11219100 (Version 2)
Quarter: 2015Q4

REPORT INFORMATION
  Report Type: Spontaneous
  Country: MY (occurrence: MY)
  Receive Date: 20150625
  Receipt Date: 20151119
  Transmission Date: 20160304
  Serious: Yes (Other)
  Sender: FDA-Public Use
  Company Number: MY-HOSPIRA-2906974

PATIENT

DRUGS (1)
  1. ANZATAX                            /00285201/ [Suspect]
     Active Substance: CLONAZEPAM
     Indication: PRODUCT USED FOR UNKNOWN INDICATION

REACTIONS (3)
  - Bronchospasm [Unknown]
  - Dermatitis acneiform [Unknown]
  - Rash maculo-papular [Unknown]
